FAERS Safety Report 8514294 (Version 5)
Quarter: 2012Q4

REPORT INFORMATION
  Report Type: 
  Country: JP (occurrence: JP)
  Receive Date: 20120416
  Receipt Date: 20121206
  Transmission Date: 20130627
  Serious: Yes (Life-Threatening, Hospitalization, Other)
  Sender: FDA-Public Use
  Company Number: PHHY2012JP031111

PATIENT
  Age: 83 Year
  Sex: Female

DRUGS (7)
  1. RIVASTIGMINE [Suspect]
     Indication: DEMENTIA ALZHEIMER^S TYPE
     Dosage: 4.5 mg/day
     Route: 062
     Dates: start: 20110912, end: 20111010
  2. RIVASTIGMINE [Suspect]
     Dosage: 9 mg/day
     Route: 062
     Dates: start: 20111011, end: 20111019
  3. AMLODIN OD [Concomitant]
  4. TANATRIL [Concomitant]
  5. ZYLORIC [Concomitant]
  6. MAGMITT [Concomitant]
  7. ARGAMATE [Concomitant]

REACTIONS (12)
  - Large intestinal obstruction [Recovered/Resolved]
  - Vomiting [Unknown]
  - Abdominal pain [Unknown]
  - Peritonitis [Unknown]
  - Decreased appetite [Recovered/Resolved]
  - Constipation [Unknown]
  - Gastrointestinal oedema [Recovering/Resolving]
  - Ileus [Unknown]
  - Abdominal tenderness [Unknown]
  - Gastrointestinal inflammation [Unknown]
  - Cardiovascular disorder [Unknown]
  - Hypercalcaemia [Recovered/Resolved]
